FAERS Safety Report 5080477-1 (Version None)
Quarter: 2006Q3

REPORT INFORMATION
  Report Type: 
  Country: None (occurrence: None)
  Receive Date: 20060815
  Receipt Date: 20001107
  Transmission Date: 20061208
  Serious: Yes (Hospitalization)
  Sender: FDA-Public Use
  Company Number: US-SOLVAY-00200006302

PATIENT
  Age: 22770 Day
  Sex: Female

DRUGS (2)
  1. PREMARIN [Concomitant]
     Indication: MENOPAUSAL SYMPTOMS
     Dosage: DAILY DOSE: 1.25 MG.
     Route: 048
  2. ACEON [Suspect]
     Indication: HYPERTENSION
     Dosage: DAILY DOSE: 4 MG.
     Route: 048
     Dates: start: 20000731, end: 20000908

REACTIONS (5)
  - BODY TEMPERATURE INCREASED [None]
  - DELIRIUM TREMENS [None]
  - HEADACHE [None]
  - NAUSEA [None]
  - VOMITING [None]
